FAERS Safety Report 10062182 (Version 1)
Quarter: 2014Q2

REPORT INFORMATION
  Report Type: Spontaneous
  Country: CL (occurrence: CL)
  Receive Date: 20140407
  Receipt Date: 20140407
  Transmission Date: 20141212
  Serious: Yes (Other)
  Sender: FDA-Public Use
  Company Number: CL-PFIZER INC-2014092529

PATIENT
  Sex: Female

DRUGS (1)
  1. XALATAN [Suspect]
     Indication: GLAUCOMA
     Dosage: UNK
     Dates: start: 2004

REACTIONS (4)
  - Anaemia [Unknown]
  - Visual acuity reduced [Unknown]
  - Optic nerve disorder [Unknown]
  - Haemorrhoids [Unknown]
